FAERS Safety Report 7517220-X (Version None)
Quarter: 2011Q2

REPORT INFORMATION
  Report Type: 
  Country: None (occurrence: None)
  Receive Date: 20110601
  Receipt Date: 20110525
  Transmission Date: 20111010
  Serious: Yes (Other)
  Sender: FDA-Public Use
  Company Number: JP-ABBOTT-11P-087-0728448-00

PATIENT
  Sex: Female

DRUGS (4)
  1. ZOLPIDEM TARTRATE [Concomitant]
     Indication: PRODUCT USED FOR UNKNOWN INDICATION
  2. DONEPEZIL HYDROCHLORIDE [Concomitant]
     Indication: PRODUCT USED FOR UNKNOWN INDICATION
  3. FENOFIBRATE [Suspect]
     Indication: HYPERLIPIDAEMIA
     Dosage: DAILY DOSE: 200MG
     Route: 048
     Dates: start: 20110321, end: 20110411
  4. SENNOSIDE [Concomitant]
     Indication: PRODUCT USED FOR UNKNOWN INDICATION

REACTIONS (3)
  - HEPATIC FUNCTION ABNORMAL [None]
  - DRUG ERUPTION [None]
  - BLOOD PRESSURE DECREASED [None]
